FAERS Safety Report 6625781-8 (Version None)
Quarter: 2010Q1

REPORT INFORMATION
  Report Type: 
  Country: None (occurrence: None)
  Receive Date: 20100305
  Receipt Date: 20100222
  Transmission Date: 20100710
  Serious: Yes (Hospitalization)
  Sender: FDA-Public Use
  Company Number: CERZ-1001022

PATIENT
  Age: 48 Year
  Sex: Female
  Weight: 71.8 kg

DRUGS (1)
  1. CEREZYME [Suspect]
     Indication: GAUCHER'S DISEASE
     Dosage: 4000 U, Q2W, INTRAVENOUS
     Route: 042
     Dates: start: 20020101

REACTIONS (4)
  - ABDOMINAL PAIN [None]
  - BREAST CANCER IN SITU [None]
  - JOINT DISLOCATION [None]
  - PAIN IN EXTREMITY [None]
